FAERS Safety Report 7712643-8 (Version None)
Quarter: 2011Q3

REPORT INFORMATION
  Report Type: 
  Country: None (occurrence: None)
  Receive Date: 20110826
  Receipt Date: 20110823
  Transmission Date: 20111222
  Serious: Yes (Hospitalization, Other)
  Sender: FDA-Public Use
  Company Number: US-AMGEN-USACT2011038489

PATIENT
  Age: 71 Year
  Sex: Male
  Weight: 66.2 kg

DRUGS (3)
  1. DOCETAXEL [Concomitant]
     Indication: OESOPHAGEAL ADENOCARCINOMA
     Dosage: 40 MG/M2, Q2WK
     Dates: start: 20110523
  2. CISPLATIN [Concomitant]
     Indication: OESOPHAGEAL ADENOCARCINOMA
     Dosage: 40 MG/M2, Q2WK
     Dates: start: 20110523
  3. PANITUMUMAB [Suspect]
     Indication: OESOPHAGEAL ADENOCARCINOMA
     Dosage: 6 MG/KG, Q2WK
     Dates: start: 20110523

REACTIONS (6)
  - COGNITIVE DISORDER [None]
  - ATRIAL FIBRILLATION [None]
  - DEHYDRATION [None]
  - FATIGUE [None]
  - LYMPHOCYTE COUNT DECREASED [None]
  - TROPONIN I INCREASED [None]
